FAERS Safety Report 23296299 (Version 1)
Quarter: 2023Q4

REPORT INFORMATION
  Report Type: Spontaneous
  Country: IT (occurrence: IT)
  Receive Date: 20231214
  Receipt Date: 20231214
  Transmission Date: 20240110
  Serious: Yes (Other)
  Sender: FDA-Public Use
  Company Number: None

PATIENT
  Age: 47 Year
  Sex: Male

DRUGS (1)
  1. NATALIZUMAB [Suspect]
     Active Substance: NATALIZUMAB
     Indication: Multiple sclerosis
     Dosage: 300 MG ONCE EVERY 6 WEEKS
     Route: 042
     Dates: start: 2010

REACTIONS (1)
  - Testicular neoplasm [Recovered/Resolved]

NARRATIVE: CASE EVENT DATE: 20230501
